FAERS Safety Report 7808619-2 (Version None)
Quarter: 2011Q4

REPORT INFORMATION
  Report Type: 
  Country: None (occurrence: None)
  Receive Date: 20111012
  Receipt Date: 20111010
  Transmission Date: 20120403
  Serious: No
  Sender: FDA-Public Use
  Company Number: US-PFIZER INC-2011241681

PATIENT
  Sex: Male
  Weight: 72.562 kg

DRUGS (2)
  1. AMIODARONE HCL [Suspect]
     Indication: ATRIAL FIBRILLATION
     Dosage: UNK, DAILY
     Dates: end: 20110101
  2. PLAVIX [Concomitant]
     Dosage: UNK
     Route: 048

REACTIONS (1)
  - CORNEAL DEPOSITS [None]
